FAERS Safety Report 24040468 (Version 1)
Quarter: 2024Q3

REPORT INFORMATION
  Report Type: Other
  Country: JP (occurrence: JP)
  Receive Date: 20240702
  Receipt Date: 20240702
  Transmission Date: 20241017
  Serious: Yes (Other)
  Sender: GUARDIAN PHARMACEUTICALS
  Company Number: JP-Guardian Drug Company-2158765

PATIENT
  Sex: Male

DRUGS (2)
  1. CHILDRENS IBUPROFEN [Suspect]
     Active Substance: IBUPROFEN
     Indication: Histiocytic necrotising lymphadenitis
     Route: 065
  2. CYCLOSPORINE [Suspect]
     Active Substance: CYCLOSPORINE
     Route: 065

REACTIONS (4)
  - Hypothermia [Unknown]
  - Product use in unapproved indication [Unknown]
  - Hypotension [Unknown]
  - Bradycardia [Unknown]
